FAERS Safety Report 17884907 (Version 2)
Quarter: 2020Q2

REPORT INFORMATION
  Report Type: Spontaneous
  Country: FR (occurrence: FR)
  Receive Date: 20200611
  Receipt Date: 20200629
  Transmission Date: 20200714
  Serious: Yes (Death, Life-Threatening, Other)
  Sender: FDA-Public Use
  Company Number: NVSC2020FR162379

PATIENT
  Age: 64 Year
  Sex: Male

DRUGS (2)
  1. KYMRIAH [Suspect]
     Active Substance: TISAGENLECLEUCEL
     Indication: PRODUCT USED FOR UNKNOWN INDICATION
     Dosage: UNK (2.4 X10E8 CAR-POSITIVE VIABLE T-CELLS)
     Route: 065
  2. BENDAMUSTINE [Concomitant]
     Active Substance: BENDAMUSTINE
     Indication: PRODUCT USED FOR UNKNOWN INDICATION
     Dosage: UNK
     Route: 065
     Dates: start: 20200103

REACTIONS (16)
  - Hepatocellular injury [Unknown]
  - Cytokine release syndrome [Recovered/Resolved]
  - Septic shock [Unknown]
  - Thrombocytopenia [Unknown]
  - Death [Fatal]
  - Disease progression [Unknown]
  - Cholestasis [Unknown]
  - Nervous system disorder [Recovered/Resolved]
  - Acute kidney injury [Unknown]
  - Capillary leak syndrome [Unknown]
  - Pulmonary embolism [Unknown]
  - Abdominal pain [Unknown]
  - Colitis ischaemic [Unknown]
  - Pyrexia [Unknown]
  - Hypotension [Unknown]
  - Circulatory collapse [Unknown]

NARRATIVE: CASE EVENT DATE: 20191030
